FAERS Safety Report 6753234-5 (Version None)
Quarter: 2010Q2

REPORT INFORMATION
  Report Type: 
  Country: None (occurrence: None)
  Receive Date: 20100603
  Receipt Date: 20100603
  Transmission Date: 20101027
  Serious: Yes (Death, Other)
  Sender: FDA-Public Use
  Company Number: None

PATIENT
  Age: 1 Month
  Sex: Female
  Weight: 1.8144 kg

DRUGS (4)
  1. CONCENTRATED TYLENOL INFANT DROPS [Suspect]
     Indication: CRYING
     Dosage: SMALLEST DOSE WAS GIVEN 1 PO
     Route: 048
  2. CONCENTRATED TYLENOL INFANT DROPS [Suspect]
     Indication: VOMITING
     Dosage: SMALLEST DOSE WAS GIVEN 1 PO
     Route: 048
  3. CONCENTRATED MOTRIN INFANTS DROPS [Suspect]
     Indication: CRYING
     Dosage: SMALLEST DOSE WAS GIVEN 1 PO
     Route: 048
  4. CONCENTRATED MOTRIN INFANTS DROPS [Suspect]
     Indication: VOMITING
     Dosage: SMALLEST DOSE WAS GIVEN 1 PO
     Route: 048

REACTIONS (1)
  - PRODUCT QUALITY ISSUE [None]
